FAERS Safety Report 20184976 (Version 1)
Quarter: 2021Q4

REPORT INFORMATION
  Report Type: Spontaneous
  Country: US (occurrence: US)
  Receive Date: 20211214
  Receipt Date: 20211214
  Transmission Date: 20220303
  Serious: No
  Sender: FDA-Public Use
  Company Number: US-PURDUE-USA-2021-0270429

PATIENT
  Age: 73 Year
  Sex: Male

DRUGS (3)
  1. HYSINGLA ER [Suspect]
     Active Substance: HYDROCODONE BITARTRATE
     Indication: Arthralgia
     Dosage: 40 MG, UNK
     Route: 048
     Dates: start: 202106
  2. HYSINGLA ER [Suspect]
     Active Substance: HYDROCODONE BITARTRATE
     Dosage: 60 MG, UNK
     Route: 048
  3. HYSINGLA ER [Suspect]
     Active Substance: HYDROCODONE BITARTRATE
     Dosage: 80 MG, UNK
     Route: 048

REACTIONS (8)
  - Aspartate aminotransferase decreased [Unknown]
  - Synovial disorder [Unknown]
  - Arthropathy [Unknown]
  - Joint stiffness [Unknown]
  - Discomfort [Unknown]
  - Joint swelling [Recovered/Resolved]
  - Arthralgia [Recovered/Resolved]
  - Insomnia [Unknown]

NARRATIVE: CASE EVENT DATE: 20210601
